FAERS Safety Report 7069985-1 (Version None)
Quarter: 2010Q4

REPORT INFORMATION
  Report Type: 
  Country: None (occurrence: None)
  Receive Date: 20101028
  Receipt Date: 20100726
  Transmission Date: 20110411
  Serious: No
  Sender: FDA-Public Use
  Company Number: US-WYE-H16431710

PATIENT
  Sex: Male

DRUGS (2)
  1. BENEFIX [Suspect]
     Indication: FACTOR IX DEFICIENCY
     Dosage: 1900 UNIT EVERY 1 DAY
     Route: 042
     Dates: start: 20100701, end: 20100721
  2. BENEFIX [Suspect]
     Dosage: 1900 UNIT EVERY 1 WK
     Route: 042
     Dates: start: 20100722

REACTIONS (2)
  - COUGH [None]
  - PYREXIA [None]
